FAERS Safety Report 19849954 (Version 30)
Quarter: 2025Q4

REPORT INFORMATION
  Report Type: Report from Study
  Country: US (occurrence: US)
  Receive Date: 20210918
  Receipt Date: 20251208
  Transmission Date: 20260118
  Serious: Yes (Other)
  Sender: TAKEDA
  Company Number: US-TAKEDA-2021TUS056372

PATIENT
  Age: 83 Year
  Sex: Female
  Weight: 75 kg

DRUGS (21)
  1. BRIGATINIB [Suspect]
     Active Substance: BRIGATINIB
     Indication: Lung neoplasm malignant
     Dosage: 60 MILLIGRAM, QD
     Dates: start: 20210719, end: 20230329
  2. BRIGATINIB [Suspect]
     Active Substance: BRIGATINIB
     Indication: Malignant pleural effusion
     Dosage: 90 MILLIGRAM, QD
     Dates: start: 20210902
  3. BRIGATINIB [Suspect]
     Active Substance: BRIGATINIB
     Dosage: 30 MILLIGRAM, BID
  4. BRIGATINIB [Suspect]
     Active Substance: BRIGATINIB
     Dosage: 60 MILLIGRAM, QD
  5. BRIGATINIB [Suspect]
     Active Substance: BRIGATINIB
     Dosage: 30 MILLIGRAM, QD
  6. BRIGATINIB [Suspect]
     Active Substance: BRIGATINIB
     Dosage: 30 MILLIGRAM, BID
  7. BRIGATINIB [Suspect]
     Active Substance: BRIGATINIB
     Dosage: UNK
  8. BRIGATINIB [Suspect]
     Active Substance: BRIGATINIB
     Dosage: 30 MILLIGRAM, QD
  9. BRIGATINIB [Suspect]
     Active Substance: BRIGATINIB
     Dosage: 30 MILLIGRAM
  10. BRIGATINIB [Suspect]
     Active Substance: BRIGATINIB
     Dosage: 30 MILLIGRAM, BID
  11. BRIGATINIB [Suspect]
     Active Substance: BRIGATINIB
     Dosage: 60 MILLIGRAM, QD
  12. BRIGATINIB [Suspect]
     Active Substance: BRIGATINIB
     Dosage: 30 MILLIGRAM
  13. LOSARTAN [Suspect]
     Active Substance: LOSARTAN
     Indication: Hypertension
     Dosage: 25 MILLIGRAM
  14. LOSARTAN [Suspect]
     Active Substance: LOSARTAN
     Dosage: 50 MILLIGRAM, QD
  15. JANUVIA [Concomitant]
     Active Substance: SITAGLIPTIN PHOSPHATE
     Indication: Diabetes mellitus
     Dosage: 50 MILLIGRAM, QD
  16. JANUVIA [Concomitant]
     Active Substance: SITAGLIPTIN PHOSPHATE
     Dosage: 100 MILLIGRAM
  17. OMEPRAZOLE [Concomitant]
     Active Substance: OMEPRAZOLE
     Indication: Hypertension
     Dosage: 20 MILLIGRAM
  18. NORTRIPTYLINE [Concomitant]
     Active Substance: NORTRIPTYLINE
     Indication: Diabetes mellitus
     Dosage: 10 MILLIGRAM
  19. ASPIRIN [Concomitant]
     Active Substance: ASPIRIN
     Dosage: 81 MILLIGRAM
  20. CLARITIN [Concomitant]
     Active Substance: LORATADINE
     Dosage: UNK
  21. MATZIM LA [Concomitant]
     Active Substance: DILTIAZEM HYDROCHLORIDE
     Dosage: 180 MILLIGRAM, QD

REACTIONS (35)
  - Hiatus hernia [Unknown]
  - Renal impairment [Unknown]
  - Diverticulitis [Not Recovered/Not Resolved]
  - Stress [Unknown]
  - Amnesia [Unknown]
  - Illness [Recovering/Resolving]
  - Bedridden [Unknown]
  - Feeling abnormal [Unknown]
  - Gait disturbance [Unknown]
  - Nerve injury [Unknown]
  - Skin exfoliation [Recovering/Resolving]
  - Drug intolerance [Unknown]
  - Hypophagia [Unknown]
  - Hyperhidrosis [Unknown]
  - Weight fluctuation [Unknown]
  - Nervousness [Unknown]
  - Skin mass [Unknown]
  - Joint swelling [Unknown]
  - Intentional underdose [Unknown]
  - Product dose omission issue [Unknown]
  - Blood pressure decreased [Recovering/Resolving]
  - Anxiety [Recovering/Resolving]
  - Eye pruritus [Recovering/Resolving]
  - Malaise [Unknown]
  - Depression [Recovering/Resolving]
  - Memory impairment [Unknown]
  - Gastrooesophageal reflux disease [Not Recovered/Not Resolved]
  - Constipation [Not Recovered/Not Resolved]
  - Blood pressure increased [Unknown]
  - Pain in extremity [Unknown]
  - Rash [Not Recovered/Not Resolved]
  - Peripheral swelling [Unknown]
  - Dizziness [Unknown]
  - Diarrhoea [Unknown]
  - Pruritus [Recovering/Resolving]

NARRATIVE: CASE EVENT DATE: 20220125
